FAERS Safety Report 22264104 (Version 1)
Quarter: 2023Q2

REPORT INFORMATION
  Report Type: Spontaneous
  Country: US (occurrence: US)
  Receive Date: 20230428
  Receipt Date: 20230428
  Transmission Date: 20230721
  Serious: Yes (Death, Hospitalization)
  Sender: FDA-Public Use
  Company Number: US-drreddys-LIT/USA/23/0164278

PATIENT
  Age: 34 Year
  Sex: Male

DRUGS (13)
  1. DEXAMETHASONE [Suspect]
     Active Substance: DEXAMETHASONE
     Indication: Acute lymphocytic leukaemia
  2. MERCAPTOPURINE [Suspect]
     Active Substance: MERCAPTOPURINE
     Indication: Acute lymphocytic leukaemia
     Dosage: CONSOLIDATION THERAPY WITH COURSE-2
  3. INOTUZUMAB OZOGAMICIN [Suspect]
     Active Substance: INOTUZUMAB OZOGAMICIN
     Indication: Acute lymphocytic leukaemia
     Dosage: 0.6 MG/M2 ON DAY 2
  4. INOTUZUMAB OZOGAMICIN [Suspect]
     Active Substance: INOTUZUMAB OZOGAMICIN
     Dosage: 0.3 MG/M2, DAY 8
  5. CYCLOPHOSPHAMIDE [Suspect]
     Active Substance: CYCLOPHOSPHAMIDE
     Indication: Acute lymphocytic leukaemia
     Dosage: CONSOLIDATION THERAPY WITH COURSE-2
  6. VINCRISTINE [Suspect]
     Active Substance: VINCRISTINE
     Indication: Acute lymphocytic leukaemia
     Dosage: COMPLETED 1 COURSE OF INDUCTION THERAPY
  7. VINCRISTINE [Suspect]
     Active Substance: VINCRISTINE
     Dosage: CONSOLIDATION THERAPY WITH COURSE-2
  8. RITUXIMAB [Suspect]
     Active Substance: RITUXIMAB
     Indication: Acute lymphocytic leukaemia
  9. PEGASPARGASE [Suspect]
     Active Substance: PEGASPARGASE
     Indication: Acute lymphocytic leukaemia
     Dosage: COMPLETED 1 COURSE OF INDUCTION THERAPY
  10. PEGASPARGASE [Suspect]
     Active Substance: PEGASPARGASE
     Dosage: CONSOLIDATION THERAPY WITH COURSE-2
  11. CYTARABINE [Suspect]
     Active Substance: CYTARABINE
     Indication: Acute lymphocytic leukaemia
     Dosage: 1 COURSE OF INDUCTION THERAPY
  12. CYTARABINE [Suspect]
     Active Substance: CYTARABINE
     Dosage: CONSOLIDATION THERAPY WITH COURSE-2
  13. METHOTREXATE [Suspect]
     Active Substance: METHOTREXATE
     Indication: Acute lymphocytic leukaemia
     Dosage: COMPLETED 1 COURSE OF INDUCTION THERAPY

REACTIONS (7)
  - Graft versus host disease in gastrointestinal tract [Fatal]
  - Pancytopenia [Unknown]
  - Acute lymphocytic leukaemia recurrent [Unknown]
  - Disease recurrence [Unknown]
  - K-ras gene mutation [Unknown]
  - EZH2 gene mutation [Unknown]
  - Product use in unapproved indication [Unknown]
